FAERS Safety Report 5021772-1 (Version None)
Quarter: 2006Q2

REPORT INFORMATION
  Report Type: 
  Country: None (occurrence: None)
  Receive Date: 20060605
  Receipt Date: 20060428
  Transmission Date: 20061013
  Serious: Yes (Hospitalization)
  Sender: FDA-Public Use
  Company Number: 2006058895

PATIENT
  Age: 54 Year
  Sex: Female

DRUGS (1)
  1. BEXTRA [Suspect]
     Indication: JOINT INJURY
     Dosage: 10 MG (10 MG 1 IN 1 D)

REACTIONS (2)
  - CEREBRAL THROMBOSIS [None]
  - ILL-DEFINED DISORDER [None]
